FAERS Safety Report 9550885 (Version 1)
Quarter: 2013Q3

REPORT INFORMATION
  Report Type: Spontaneous
  Country: US (occurrence: US)
  Receive Date: 20130924
  Receipt Date: 20130924
  Transmission Date: 20140515
  Serious: No
  Sender: FDA-Public Use
  Company Number: US-SANOFI-AVENTIS-2013SA041008

PATIENT
  Age: 53 Year
  Sex: Female
  Weight: 85.72 kg

DRUGS (9)
  1. AUBAGIO [Suspect]
     Indication: MULTIPLE SCLEROSIS
     Route: 048
     Dates: start: 20130107, end: 201306
  2. AUBAGIO [Suspect]
     Indication: MULTIPLE SCLEROSIS
  3. LUNESTA [Concomitant]
  4. XANAX [Concomitant]
  5. REQUIP [Concomitant]
  6. DITROPAN [Concomitant]
  7. VITAMIN D3 [Concomitant]
     Dosage: DOSE:200 UNIT(S)
  8. MULTIVITAMINS [Concomitant]
  9. CRANBERRY EXTRACT [Concomitant]

REACTIONS (5)
  - Gastric hypertonia [Not Recovered/Not Resolved]
  - Multiple sclerosis relapse [Unknown]
  - Palpitations [Not Recovered/Not Resolved]
  - Hypoaesthesia [Not Recovered/Not Resolved]
  - Diarrhoea [Not Recovered/Not Resolved]
